FAERS Safety Report 24458165 (Version 5)
Quarter: 2025Q1

REPORT INFORMATION
  Report Type: Report from Study
  Country: US (occurrence: US)
  Receive Date: 20241018
  Receipt Date: 20250307
  Transmission Date: 20250409
  Serious: Yes (Other)
  Sender: ACADIA PHARMACEUTICALS
  Company Number: US-ACADIA PHARMACEUTICALS INC.-ACA-2024-PIM-005884

PATIENT
  Sex: Female

DRUGS (20)
  1. NUPLAZID [Suspect]
     Active Substance: PIMAVANSERIN TARTRATE
     Indication: Parkinson^s disease psychosis
     Dosage: 34 MILLIGRAM, QD
     Route: 048
  2. NUPLAZID [Suspect]
     Active Substance: PIMAVANSERIN TARTRATE
     Indication: Parkinson^s disease
     Dosage: 34 MILLIGRAM, QD
     Route: 048
  3. NUPLAZID [Suspect]
     Active Substance: PIMAVANSERIN TARTRATE
     Indication: Hallucination
  4. NUPLAZID [Suspect]
     Active Substance: PIMAVANSERIN TARTRATE
     Indication: Delusion
  5. VITAMIN B COMPLEX [Concomitant]
     Active Substance: CYANOCOBALAMIN\DEXPANTHENOL\NIACINAMIDE\PYRIDOXINE HYDROCHLORIDE\RIBOFLAVIN 5^-PHOSPHATE SODIUM\THIA
  6. COENZYME Q10 [Concomitant]
     Active Substance: DIETARY SUPPLEMENT\UBIDECARENONE
  7. CRANBERRY [Concomitant]
     Active Substance: CRANBERRY
  8. GABAPENTIN [Concomitant]
     Active Substance: GABAPENTIN
  9. LECITHIN [Concomitant]
     Active Substance: LECITHIN
  10. LEVOTHYROXINE [Concomitant]
     Active Substance: LEVOTHYROXINE
  11. MELATONIN [Concomitant]
     Active Substance: MELATONIN
  12. MIRTAZAPINE [Concomitant]
     Active Substance: MIRTAZAPINE
  13. VITAMINS [Concomitant]
     Active Substance: VITAMINS
  14. MYRBETRIQ [Concomitant]
     Active Substance: MIRABEGRON
  15. ONGENTYS [Concomitant]
     Active Substance: OPICAPONE
  16. RASAGILINE MESYLATE [Concomitant]
     Active Substance: RASAGILINE MESYLATE
  17. RYTARY [Concomitant]
     Active Substance: CARBIDOPA\LEVODOPA
  18. VENLAFAXINE [Concomitant]
     Active Substance: VENLAFAXINE HYDROCHLORIDE
  19. VENLAFAXINE [Concomitant]
     Active Substance: VENLAFAXINE HYDROCHLORIDE
  20. VITAMIN C [Concomitant]
     Active Substance: ASCORBIC ACID

REACTIONS (8)
  - Hallucination, auditory [Not Recovered/Not Resolved]
  - Hallucinations, mixed [Unknown]
  - Therapy interrupted [Recovered/Resolved]
  - Language disorder [Unknown]
  - Loss of personal independence in daily activities [Unknown]
  - Depression [Unknown]
  - Gait disturbance [Unknown]
  - Drug ineffective [Not Recovered/Not Resolved]
